FAERS Safety Report 20670500 (Version 2)
Quarter: 2022Q2

REPORT INFORMATION
  Report Type: Spontaneous
  Country: CA (occurrence: CA)
  Receive Date: 20220404
  Receipt Date: 20220418
  Transmission Date: 20220720
  Serious: Yes (Other)
  Sender: FDA-Public Use
  Company Number: CA-AMERICAN REGENT INC-2022000914

PATIENT
  Age: 37 Year
  Sex: Female

DRUGS (2)
  1. VENOFER [Suspect]
     Active Substance: IRON SUCROSE
     Indication: Blood iron decreased
     Dosage: FIRST DOSE OF VENOFER, ONCE
     Route: 042
     Dates: start: 20211028, end: 20211028
  2. FERROUS FUMARATE [Concomitant]
     Active Substance: FERROUS FUMARATE
     Indication: Product used for unknown indication
     Dosage: UNK
     Route: 065

REACTIONS (9)
  - Dysstasia [Recovered/Resolved]
  - Gait disturbance [Recovered/Resolved]
  - Pain [Recovered/Resolved]
  - Joint stiffness [Recovered/Resolved]
  - Wheezing [Recovered/Resolved]
  - Paraesthesia [Recovered/Resolved]
  - Peripheral swelling [Recovered/Resolved]
  - Back pain [Recovered/Resolved]
  - Cough [Recovered/Resolved]

NARRATIVE: CASE EVENT DATE: 20211028
